FAERS Safety Report 7020395-2 (Version None)
Quarter: 2010Q3

REPORT INFORMATION
  Report Type: 
  Country: None (occurrence: None)
  Receive Date: 20100929
  Receipt Date: 20100924
  Transmission Date: 20110219
  Serious: Yes (Other)
  Sender: FDA-Public Use
  Company Number: US-TYCO HEALTHCARE/MALLINCKRODT-T201000626

PATIENT
  Age: 4 Year
  Sex: Male

DRUGS (12)
  1. OPTIRAY 350 [Suspect]
     Indication: CATHETERISATION CARDIAC
     Dosage: UNK
  2. AMOXICILLIN AND CLAVULANATE POTASSIUM [Concomitant]
     Indication: COUGH
     Dosage: UNK
  3. PANCURONIUM [Concomitant]
     Indication: CATHETERISATION CARDIAC
     Dosage: UNK
  4. LIDOCAINE [Concomitant]
     Indication: CATHETERISATION CARDIAC
     Dosage: UNK
  5. ONDANSETRON [Concomitant]
     Indication: CATHETERISATION CARDIAC
     Dosage: UNK
  6. NEOSTIGMINE [Concomitant]
     Indication: CATHETERISATION CARDIAC
     Dosage: UNK
  7. PENTOTHAL [Concomitant]
     Indication: CATHETERISATION CARDIAC
     Dosage: UNK
  8. DEXAMETHASONE [Concomitant]
     Indication: CATHETERISATION CARDIAC
     Dosage: UNK
  9. GLYCOPYRROLATE                     /00196202/ [Concomitant]
     Indication: CATHETERISATION CARDIAC
     Dosage: UNK
  10. HALOTHANE [Concomitant]
     Indication: CATHETERISATION CARDIAC
     Dosage: UNK
  11. SEVOFLURANE [Concomitant]
     Indication: CATHETERISATION CARDIAC
     Dosage: UNK
  12. ISOFLURANE [Concomitant]
     Indication: CATHETERISATION CARDIAC
     Dosage: UNK

REACTIONS (1)
  - ACUTE GENERALISED EXANTHEMATOUS PUSTULOSIS [None]
